FAERS Safety Report 12297464 (Version 1)
Quarter: 2016Q2

REPORT INFORMATION
  Report Type: Spontaneous
  Country: US (occurrence: US)
  Receive Date: 20160422
  Receipt Date: 20160422
  Transmission Date: 20160815
  Serious: No
  Sender: FDA-Public Use
  Company Number: US-PERRIGO-16US001966

PATIENT
  Age: 76 Year
  Sex: Male

DRUGS (2)
  1. CLOBETASOL PROPIONATE. [Suspect]
     Active Substance: CLOBETASOL PROPIONATE
     Dosage: UNKNOWN AMOUNT OF LIQUID, SINGLE
     Route: 061
     Dates: start: 201601, end: 201601
  2. CLOBETASOL PROPIONATE. [Suspect]
     Active Substance: CLOBETASOL PROPIONATE
     Indication: DERMATOSIS
     Dosage: 1 TO 1.5 CAPFUL, BID
     Route: 061
     Dates: start: 20151221, end: 201601

REACTIONS (3)
  - Accidental exposure to product [Recovered/Resolved]
  - No adverse event [Recovered/Resolved]
  - Wrong technique in product usage process [Recovered/Resolved]

NARRATIVE: CASE EVENT DATE: 201601
